FAERS Safety Report 8612493 (Version 2)
Quarter: 2012Q4

REPORT INFORMATION
  Report Type: 
  Country: IT (occurrence: IT)
  Receive Date: 20120613
  Receipt Date: 20121125
  Transmission Date: 20130627
  Serious: Yes (Death, Hospitalization)
  Sender: FDA-Public Use
  Company Number: IT-CELGENEUS-083-21880-10080527

PATIENT
  Age: 68 Year
  Sex: Male

DRUGS (1)
  1. REVLIMID [Suspect]
     Indication: FOLLICULAR B-CELL NON-HODGKIN^S LYMPHOMA
     Dosage: 15 Milligram
     Route: 048
     Dates: start: 20100712, end: 20100804

REACTIONS (2)
  - Thrombocytopenia [Recovered/Resolved]
  - Mantle cell lymphoma [Fatal]
